FAERS Safety Report 9842526 (Version 2)
Quarter: 2014Q1

REPORT INFORMATION
  Report Type: Report from Study
  Country: US (occurrence: US)
  Receive Date: 20140124
  Receipt Date: 20140124
  Transmission Date: 20141002
  Serious: Yes (Life-Threatening, Hospitalization, Other)
  Sender: FDA-Public Use
  Company Number: PHHO2013US015248

PATIENT
  Age: 62 Year
  Sex: Female
  Weight: 72.8 kg

DRUGS (6)
  1. AFINITOR [Suspect]
     Indication: NEOPLASM MALIGNANT
     Dosage: 15 MG, Q28 DAYS
     Route: 048
     Dates: start: 20110525, end: 201311
  2. LENALIDOMIDE [Suspect]
     Indication: NEOPLASM MALIGNANT
     Dosage: 5 MG, Q28 DAYS
     Route: 048
     Dates: start: 20110525, end: 201311
  3. ASPIRIN [Concomitant]
     Indication: THROMBOSIS PROPHYLAXIS
     Dosage: 325 MG, QD
     Route: 048
  4. LEVOTHYROXINE [Concomitant]
     Indication: THYROID CANCER
     Dosage: 0.125 MG, QD
     Route: 048
  5. LISINOPRIL W/HYDROCHLOROTHIAZIDE [Concomitant]
     Indication: HYPERTENSION
     Dosage: UNK
     Route: 048
  6. RED BLOOD CELLS [Concomitant]

REACTIONS (2)
  - Leukaemia [Not Recovered/Not Resolved]
  - Syncope [Not Recovered/Not Resolved]
